FAERS Safety Report 8305857-X (Version None)
Quarter: 2012Q1

REPORT INFORMATION
  Report Type: 
  Country: None (occurrence: None)
  Receive Date: 20120326
  Receipt Date: 20120202
  Transmission Date: 20120608
  Serious: Yes (Other)
  Sender: FDA-Public Use
  Company Number: PHEH2012US002559

PATIENT
  Sex: Male

DRUGS (1)
  1. TASIGNA [Suspect]
     Indication: CHRONIC MYELOID LEUKAEMIA
     Dosage: 300 MG, BID, ORAL
     Route: 048

REACTIONS (4)
  - AMYLASE INCREASED [None]
  - LIPASE INCREASED [None]
  - PANCREATITIS ACUTE [None]
  - ABDOMINAL PAIN UPPER [None]
